FAERS Safety Report 4587245-5 (Version None)
Quarter: 2005Q1

REPORT INFORMATION
  Report Type: 
  Country: None (occurrence: None)
  Receive Date: 20050218
  Receipt Date: 20050208
  Transmission Date: 20050727
  Serious: Yes (Hospitalization)
  Sender: FDA-Public Use
  Company Number: PHFR2003GB04965

PATIENT
  Age: 39 Year
  Sex: Male

DRUGS (5)
  1. LAMIVUDINE [Suspect]
     Route: 065
  2. CLOZARIL [Suspect]
     Indication: SCHIZOPHRENIA
     Dosage: 350MG PER DAY
     Route: 048
     Dates: start: 20010501
  3. STAVUDINE [Suspect]
     Route: 065
  4. SAQUINAVIR [Suspect]
     Route: 065
  5. VALPROATE SODIUM [Concomitant]
     Indication: AFFECTIVE DISORDER
     Dosage: 1000MG PER DAY
     Route: 048
     Dates: start: 20020401, end: 20040106

REACTIONS (9)
  - FEELING ABNORMAL [None]
  - HAEMOGLOBIN DECREASED [None]
  - MEAN CELL VOLUME INCREASED [None]
  - NEUTROPHIL COUNT DECREASED [None]
  - PLATELET COUNT DECREASED [None]
  - PNEUMONIA [None]
  - PYREXIA [None]
  - THROMBOCYTOPENIA [None]
  - WHITE BLOOD CELL COUNT DECREASED [None]
